FAERS Safety Report 6311152-0 (Version None)
Quarter: 2009Q3

REPORT INFORMATION
  Report Type: 
  Country: None (occurrence: None)
  Receive Date: 20090817
  Receipt Date: 20090811
  Transmission Date: 20100115
  Serious: No
  Sender: FDA-Public Use
  Company Number: US-B.I. PHARMACEUTICALS,INC./RIDGEFIELD-2009-BP-09552BP

PATIENT
  Sex: Male

DRUGS (2)
  1. FLOMAX [Suspect]
     Indication: BENIGN PROSTATIC HYPERPLASIA
     Dosage: 0.4 MG
     Route: 048
     Dates: start: 20040101
  2. FINASTERIDE [Suspect]
     Indication: PROSTATIC DISORDER
     Route: 048
     Dates: start: 20070101, end: 20090101

REACTIONS (2)
  - BREAST DISCHARGE [None]
  - BREAST DISCOMFORT [None]
